FAERS Safety Report 11054821 (Version 1)
Quarter: 2015Q2

REPORT INFORMATION
  Report Type: Spontaneous
  Country: None (occurrence: SE)
  Receive Date: 20150422
  Receipt Date: 20150422
  Transmission Date: 20150821
  Serious: Yes (Hospitalization)
  Sender: FDA-Public Use
  Company Number: SE-TEVA-557264ISR

PATIENT
  Age: 19 Year
  Sex: Female

DRUGS (1)
  1. ATENOLOL 25 MILLIGRAM TABLETTER [Suspect]
     Active Substance: ATENOLOL

REACTIONS (2)
  - Suicide attempt [Recovered/Resolved]
  - Toxicity to various agents [Recovered/Resolved]
